FAERS Safety Report 5447849-4 (Version None)
Quarter: 2007Q3

REPORT INFORMATION
  Report Type: 
  Country: None (occurrence: None)
  Receive Date: 20070910
  Receipt Date: 20070831
  Transmission Date: 20080115
  Serious: Yes (Other)
  Sender: FDA-Public Use
  Company Number: US-PFIZER INC-2007055158

PATIENT
  Sex: Female
  Weight: 65.8 kg

DRUGS (8)
  1. LIPITOR [Suspect]
     Indication: HYPERLIPIDAEMIA
     Dosage: TEXT:20MG, THEN 10 MG
  2. LIPITOR [Suspect]
     Indication: CORONARY ARTERY DISEASE
  3. ASPIRIN [Concomitant]
  4. COREG [Concomitant]
  5. LASIX [Concomitant]
  6. IMDUR [Concomitant]
  7. PREVACID [Concomitant]
  8. SYNTHROID [Concomitant]

REACTIONS (4)
  - ABDOMINAL DISCOMFORT [None]
  - CHEST PAIN [None]
  - HEART INJURY [None]
  - LIMB DISCOMFORT [None]
